FAERS Safety Report 11833839 (Version 6)
Quarter: 2016Q3

REPORT INFORMATION
  Report Type: Spontaneous
  Country: US (occurrence: US)
  Receive Date: 20151214
  Receipt Date: 20160809
  Transmission Date: 20161109
  Serious: No
  Sender: FDA-Public Use
  Company Number: US-ACTELION PHARMACEUTICALS US, INC.-A-NJ2015-127559

PATIENT
  Age: 62 Year
  Sex: Female

DRUGS (3)
  1. VELETRI [Suspect]
     Active Substance: EPOPROSTENOL
     Dosage: 14.2 NG/KG, PER MIN
     Route: 042
  2. SILDENAFIL. [Concomitant]
     Active Substance: SILDENAFIL
  3. VELETRI [Suspect]
     Active Substance: EPOPROSTENOL
     Indication: PULMONARY HYPERTENSION
     Dosage: 7 NG/KG, PER MIN
     Route: 042
     Dates: start: 20151112

REACTIONS (27)
  - White blood cell count increased [Unknown]
  - Hypotension [Unknown]
  - Pain in extremity [Unknown]
  - Drug intolerance [Unknown]
  - Pruritus [Unknown]
  - Anxiety disorder [Unknown]
  - Dysgeusia [Unknown]
  - Dehydration [Unknown]
  - Musculoskeletal pain [Unknown]
  - Heart rate increased [Unknown]
  - Vomiting [Unknown]
  - Pain [Unknown]
  - Staphylococcal infection [Unknown]
  - Pyrexia [Unknown]
  - Medical device change [Unknown]
  - Flushing [Unknown]
  - Catheter site erythema [Unknown]
  - Arthralgia [Unknown]
  - Abdominal pain upper [Unknown]
  - Atrial fibrillation [Unknown]
  - Blood potassium decreased [Unknown]
  - Weight increased [Unknown]
  - Catheter site pruritus [Unknown]
  - Pain in jaw [Unknown]
  - Decreased appetite [Unknown]
  - Nausea [Unknown]
  - Device related infection [Unknown]

NARRATIVE: CASE EVENT DATE: 20151217
